FAERS Safety Report 15748119 (Version 2)
Quarter: 2019Q1

REPORT INFORMATION
  Report Type: Spontaneous
  Country: US (occurrence: US)
  Receive Date: 20181221
  Receipt Date: 20190311
  Transmission Date: 20190417
  Serious: Yes (Other)
  Sender: FDA-Public Use
  Company Number: US-DRREDDYS-USA/USA/18/0106189

PATIENT
  Age: 13 Year
  Sex: Male

DRUGS (10)
  1. CYCLOPHOSPHAMIDE. [Suspect]
     Active Substance: CYCLOPHOSPHAMIDE
     Indication: NEUROBLASTOMA
     Route: 065
  2. TOPOTECAN HYDROCHLORIDE FOR INJECTION [Suspect]
     Active Substance: TOPOTECAN HYDROCHLORIDE
     Indication: NEUROBLASTOMA
     Route: 065
  3. ISOTRETINOIN NOT OTHERWISE SPECIFIED [Suspect]
     Active Substance: ISOTRETINOIN
     Indication: NEUROBLASTOMA
  4. THIOTEPA FOR INJECTION USP 15 MG [Suspect]
     Active Substance: THIOTEPA
     Indication: NEUROBLASTOMA
     Route: 065
  5. DOXORUBICIN HYDROCHLORIDE LIPOSOME INJECTION 20 MG/10 ML (2 MG/ML) AND [Suspect]
     Active Substance: DOXORUBICIN HYDROCHLORIDE
     Indication: NEUROBLASTOMA
     Route: 065
  6. MELPHALAN HYDROCHLORIDE FOR INJECTION [Suspect]
     Active Substance: MELPHALAN HYDROCHLORIDE
     Indication: NEUROBLASTOMA
     Route: 065
  7. CISPLATIN. [Suspect]
     Active Substance: CISPLATIN
     Indication: NEUROBLASTOMA
     Route: 065
  8. CARBOPLATIN. [Suspect]
     Active Substance: CARBOPLATIN
     Indication: NEUROBLASTOMA
     Route: 065
  9. ETOPOSIDE. [Suspect]
     Active Substance: ETOPOSIDE
     Indication: NEUROBLASTOMA
     Route: 065
  10. VINCRISTINE [Suspect]
     Active Substance: VINCRISTINE
     Indication: NEUROBLASTOMA
     Route: 065

REACTIONS (15)
  - Pneumonia legionella [Unknown]
  - Renal failure [Unknown]
  - Cardiac failure [Unknown]
  - Thrombotic microangiopathy [Unknown]
  - Pancytopenia [Unknown]
  - Hyperbilirubinaemia [Unknown]
  - Renal tubular injury [Unknown]
  - Haemophagocytic lymphohistiocytosis [Unknown]
  - Hypertension [Unknown]
  - Blood triglycerides increased [Unknown]
  - Myelitis transverse [Unknown]
  - Transaminases increased [Unknown]
  - Pulmonary alveolar haemorrhage [Unknown]
  - Inflammatory marker increased [Unknown]
  - Multiple organ dysfunction syndrome [Unknown]
